FAERS Safety Report 8302556-5 (Version None)
Quarter: 2012Q2

REPORT INFORMATION
  Report Type: 
  Country: None (occurrence: None)
  Receive Date: 20120420
  Receipt Date: 20120412
  Transmission Date: 20120825
  Serious: Yes (Death)
  Sender: FDA-Public Use
  Company Number: KR-BAXTER-2012BAX003152

PATIENT

DRUGS (8)
  1. CYCLOPHOSPHAMIDE [Suspect]
     Indication: BONE MARROW CONDITIONING REGIMEN
     Route: 042
  2. CIPROFLOXACIN [Concomitant]
     Indication: ANTIBIOTIC PROPHYLAXIS
     Route: 048
  3. BUSULFEX [Suspect]
     Indication: BONE MARROW CONDITIONING REGIMEN
     Route: 042
  4. ACYCLOVIR [Concomitant]
     Indication: PROPHYLAXIS
     Route: 048
  5. METRONIDAZOLE [Concomitant]
     Indication: ANTIBIOTIC PROPHYLAXIS
     Route: 048
  6. URSODIOL [Concomitant]
     Indication: PROPHYLAXIS
  7. FLUCONAZOLE [Concomitant]
     Indication: ANTIBIOTIC PROPHYLAXIS
     Route: 048
  8. COTRIM [Concomitant]
     Indication: PROPHYLAXIS

REACTIONS (1)
  - VENOOCCLUSIVE DISEASE [None]
